FAERS Safety Report 11339758 (Version 1)
Quarter: 2015Q3

REPORT INFORMATION
  Report Type: Spontaneous
  Country: IN (occurrence: None)
  Receive Date: 20150803
  Receipt Date: 20150803
  Transmission Date: 20151125
  Serious: Yes (Other)
  Sender: FDA-Public Use
  Company Number: IPC201507-000483

PATIENT
  Age: 60 Year
  Sex: Male

DRUGS (9)
  1. METFORMIN [Concomitant]
     Active Substance: METFORMIN HYDROCHLORIDE
  2. DILTIAZEM (DILTIAZEM) (DILTIAZEM) [Suspect]
     Active Substance: DILTIAZEM
     Dosage: 120 MG CONTROLLED DELIVERY ONCE A DAY
  3. GLIMIPRIDE [Concomitant]
  4. ASPIRIN. [Concomitant]
     Active Substance: ASPIRIN
  5. FLECAINIDE (FLECAINIDE) [Suspect]
     Active Substance: FLECAINIDE
     Dosage: 10 MG IN MORNING , 50 MG EVENING
  6. ATORVASTATIN [Concomitant]
     Active Substance: ATORVASTATIN
  7. METOPROLOL TARTRATE. [Suspect]
     Active Substance: METOPROLOL TARTRATE
     Indication: ILL-DEFINED DISORDER
     Dosage: 12.5 EXTENDED RELEASE
  8. AMIODARONE (AMIODARONE) [Suspect]
     Active Substance: AMIODARONE
     Indication: ATRIAL FLUTTER
     Route: 048
  9. THYROXINE [Concomitant]
     Active Substance: LEVOTHYROXINE

REACTIONS (6)
  - Syncope [None]
  - Atrioventricular block first degree [None]
  - Dizziness [None]
  - Sinus bradycardia [None]
  - Drug interaction [None]
  - Dyspnoea [None]
